FAERS Safety Report 25000316 (Version 1)
Quarter: 2025Q1

REPORT INFORMATION
  Report Type: Spontaneous
  Country: US (occurrence: US)
  Receive Date: 20250222
  Receipt Date: 20250222
  Transmission Date: 20250409
  Serious: No
  Sender: SANOFI AVENTIS
  Company Number: US-SA-2025SA051487

PATIENT
  Age: 6 Year
  Sex: Male
  Weight: 26.3 kg

DRUGS (1)
  1. DUPIXENT [Suspect]
     Active Substance: DUPILUMAB
     Indication: Dermatitis atopic
     Dosage: 300.000MG Q4W
     Route: 058
     Dates: start: 20240318

REACTIONS (2)
  - Dermatitis atopic [Unknown]
  - Therapeutic response shortened [Unknown]

NARRATIVE: CASE EVENT DATE: 20250217
